FAERS Safety Report 22982236 (Version 13)
Quarter: 2025Q3

REPORT INFORMATION
  Report Type: Spontaneous
  Country: EU (occurrence: EU)
  Receive Date: 20230926
  Receipt Date: 20250729
  Transmission Date: 20251020
  Serious: Yes (Death, Hospitalization, Other)
  Sender: SANDOZ
  Company Number: EU-ASGENIA-AS2023004997

PATIENT
  Age: 17 Year
  Sex: Female
  Weight: 56 kg

DRUGS (47)
  1. DIPRIVAN [Suspect]
     Active Substance: PROPOFOL
     Indication: Product used for unknown indication
     Route: 065
  2. ANAPEINE [Suspect]
     Active Substance: ROPIVACAINE HYDROCHLORIDE
     Indication: Analgesic therapy
     Route: 065
  3. CLOZAPINE [Suspect]
     Active Substance: CLOZAPINE
     Dosage: 12.5 MG X 2 /DIE Q12H
     Route: 048
     Dates: start: 20220903, end: 20220913
  4. CLOZAPINE [Suspect]
     Active Substance: CLOZAPINE
     Route: 065
  5. CLOZAPINE [Suspect]
     Active Substance: CLOZAPINE
     Indication: Ewing^s sarcoma
     Dosage: 100 MG
     Route: 065
     Dates: start: 20220913
  6. CLOZAPINE [Suspect]
     Active Substance: CLOZAPINE
     Indication: Psychotic disorder
     Dosage: 100 MG
     Route: 065
     Dates: start: 20220913
  7. CLOZAPINE [Suspect]
     Active Substance: CLOZAPINE
     Dosage: 550 MG, QD (100 MG)
     Route: 065
     Dates: start: 20220913
  8. CLOZAPINE [Suspect]
     Active Substance: CLOZAPINE
     Route: 065
  9. CLOZAPINE [Suspect]
     Active Substance: CLOZAPINE
     Indication: Psychotic disorder
     Route: 065
  10. CLOZAPINE [Suspect]
     Active Substance: CLOZAPINE
     Route: 065
  11. CLOZAPINE [Suspect]
     Active Substance: CLOZAPINE
     Route: 065
  12. CLONIDINE [Suspect]
     Active Substance: CLONIDINE
     Indication: Palliative sedation
     Route: 065
  13. COTRIMOXAZOLE [Suspect]
     Active Substance: SULFAMETHOXAZOLE\TRIMETHOPRIM
     Indication: Ewing^s sarcoma
     Route: 065
     Dates: start: 2022
  14. COTRIMOXAZOLE [Suspect]
     Active Substance: SULFAMETHOXAZOLE\TRIMETHOPRIM
     Indication: Pain
  15. COTRIMOXAZOLE [Suspect]
     Active Substance: SULFAMETHOXAZOLE\TRIMETHOPRIM
     Indication: Palliative care
  16. DULOXETINE [Suspect]
     Active Substance: DULOXETINE
     Indication: Ewing^s sarcoma
     Route: 065
     Dates: start: 2022
  17. DULOXETINE [Suspect]
     Active Substance: DULOXETINE
     Indication: Pain
  18. DULOXETINE [Suspect]
     Active Substance: DULOXETINE
     Indication: Palliative care
  19. DULOXETINE [Suspect]
     Active Substance: DULOXETINE
     Indication: Palliative sedation
  20. DECADRON (DEXAMETHASONE SODIUM PHOSPHATE) [Suspect]
     Active Substance: DEXAMETHASONE SODIUM PHOSPHATE
     Indication: Ewing^s sarcoma
     Route: 065
  21. DECADRON (DEXAMETHASONE SODIUM PHOSPHATE) [Suspect]
     Active Substance: DEXAMETHASONE SODIUM PHOSPHATE
     Indication: Pain
  22. DECADRON (DEXAMETHASONE SODIUM PHOSPHATE) [Suspect]
     Active Substance: DEXAMETHASONE SODIUM PHOSPHATE
     Indication: Palliative care
  23. FENTANYL [Suspect]
     Active Substance: FENTANYL
     Indication: Palliative care
     Route: 062
     Dates: start: 2022
  24. FENTANYL [Suspect]
     Active Substance: FENTANYL
     Indication: Ewing^s sarcoma
  25. FENTANYL [Suspect]
     Active Substance: FENTANYL
     Indication: Pain
  26. MIDAZOLAM HYDROCHLORIDE [Suspect]
     Active Substance: MIDAZOLAM HYDROCHLORIDE
     Route: 042
  27. MIDAZOLAM HYDROCHLORIDE [Suspect]
     Active Substance: MIDAZOLAM HYDROCHLORIDE
     Indication: Palliative sedation
     Route: 065
  28. MORPHINE HYDROCHLORIDE [Suspect]
     Active Substance: MORPHINE HYDROCHLORIDE
     Route: 042
  29. MORPHINE HYDROCHLORIDE [Suspect]
     Active Substance: MORPHINE HYDROCHLORIDE
     Route: 042
  30. MORPHINE HYDROCHLORIDE [Suspect]
     Active Substance: MORPHINE HYDROCHLORIDE
     Indication: Palliative sedation
     Route: 048
  31. MORPHINE HYDROCHLORIDE [Suspect]
     Active Substance: MORPHINE HYDROCHLORIDE
     Indication: Ewing^s sarcoma
     Route: 042
  32. MORPHINE HYDROCHLORIDE [Suspect]
     Active Substance: MORPHINE HYDROCHLORIDE
     Indication: Pain
     Route: 042
  33. MORPHINE HYDROCHLORIDE [Suspect]
     Active Substance: MORPHINE HYDROCHLORIDE
     Indication: Palliative sedation
     Route: 048
  34. MORPHINE HYDROCHLORIDE [Suspect]
     Active Substance: MORPHINE HYDROCHLORIDE
     Indication: Product used for unknown indication
     Route: 048
     Dates: start: 2022
  35. OMEPRAZOLE [Suspect]
     Active Substance: OMEPRAZOLE
     Indication: Ewing^s sarcoma
     Route: 065
  36. OMEPRAZOLE [Suspect]
     Active Substance: OMEPRAZOLE
     Indication: Pain
  37. OMEPRAZOLE [Suspect]
     Active Substance: OMEPRAZOLE
     Indication: Palliative care
  38. ONDANSETRON [Suspect]
     Active Substance: ONDANSETRON
     Indication: Ewing^s sarcoma
     Route: 065
     Dates: start: 2022
  39. ONDANSETRON [Suspect]
     Active Substance: ONDANSETRON
     Indication: Pain
  40. ONDANSETRON [Suspect]
     Active Substance: ONDANSETRON
     Indication: Palliative care
  41. ACETAMINOPHEN [Suspect]
     Active Substance: ACETAMINOPHEN
     Indication: Ewing^s sarcoma
     Route: 065
  42. ACETAMINOPHEN [Suspect]
     Active Substance: ACETAMINOPHEN
     Indication: Pain
  43. ACETAMINOPHEN [Suspect]
     Active Substance: ACETAMINOPHEN
     Indication: Palliative care
  44. PREGABALIN [Suspect]
     Active Substance: PREGABALIN
     Indication: Ewing^s sarcoma
     Route: 065
  45. PREGABALIN [Suspect]
     Active Substance: PREGABALIN
     Indication: Pain
     Route: 042
  46. PREGABALIN [Suspect]
     Active Substance: PREGABALIN
     Indication: Palliative care
  47. ROPIVACAINE [Suspect]
     Active Substance: ROPIVACAINE
     Indication: Analgesic therapy
     Route: 065

REACTIONS (21)
  - Pain [Fatal]
  - Pain [Fatal]
  - Drug ineffective [Fatal]
  - Product use in unapproved indication [Fatal]
  - Off label use [Fatal]
  - Nausea [Unknown]
  - Pyrexia [Unknown]
  - Pyrexia [Unknown]
  - Weight decreased [Unknown]
  - Psychomotor hyperactivity [Unknown]
  - Vomiting [Unknown]
  - Anxiety [Unknown]
  - Anxiety [Unknown]
  - Urine output decreased [Unknown]
  - Asthenia [Unknown]
  - Haematuria [Unknown]
  - Feeling of despair [Unknown]
  - Decreased appetite [Unknown]
  - Dyspnoea [Unknown]
  - Movement disorder [Recovering/Resolving]
  - Dizziness [Recovering/Resolving]

NARRATIVE: CASE EVENT DATE: 20220101
